FAERS Safety Report 9469940 (Version 1)
Quarter: 2013Q3

REPORT INFORMATION
  Report Type: Spontaneous
  Country: US (occurrence: None)
  Receive Date: 20130820
  Receipt Date: 20130820
  Transmission Date: 20140515
  Serious: Yes (Hospitalization)
  Sender: FDA-Public Use
  Company Number: None

PATIENT
  Age: 56 Year
  Sex: Male
  Weight: 77.5 kg

DRUGS (2)
  1. GENTAMICIN [Suspect]
     Route: 042
     Dates: start: 20120524, end: 20120605
  2. DEXTROSE [Suspect]

REACTIONS (2)
  - Nephritis [None]
  - Tubulointerstitial nephritis [None]
